FAERS Safety Report 4564440-2 (Version None)
Quarter: 2005Q1

REPORT INFORMATION
  Report Type: 
  Country: None (occurrence: None)
  Receive Date: 20050128
  Receipt Date: 20030307
  Transmission Date: 20050727
  Serious: No
  Sender: FDA-Public Use
  Company Number: US-GLAXOSMITHKLINE-A0399411A

PATIENT
  Age: 48 Year
  Sex: Male

DRUGS (2)
  1. EPIVIR [Suspect]
     Dosage: 10CC PER DAY
     Route: 048
     Dates: start: 19960901
  2. NO CONCURRENT MEDICATIONS [Concomitant]

REACTIONS (4)
  - ARTHRALGIA [None]
  - DRUG INEFFECTIVE [None]
  - FATIGUE [None]
  - PETECHIAE [None]
